FAERS Safety Report 25167188 (Version 1)
Quarter: 2025Q2

REPORT INFORMATION
  Report Type: Spontaneous
  Country: US (occurrence: None)
  Receive Date: 20250405
  Receipt Date: 20250405
  Transmission Date: 20250717
  Serious: Yes (Hospitalization)
  Sender: FDA-CTU
  Company Number: None

PATIENT
  Age: 62 Year
  Sex: Male
  Weight: 99.3 kg

DRUGS (4)
  1. FLUOROURACIL [Suspect]
     Active Substance: FLUOROURACIL
  2. XELODA [Suspect]
     Active Substance: CAPECITABINE
  3. LEUCOVORIN CALCIUM [Suspect]
     Active Substance: LEUCOVORIN CALCIUM
  4. ELOXATIN [Suspect]
     Active Substance: OXALIPLATIN

REACTIONS (7)
  - Proctectomy [None]
  - Stomal hernia [None]
  - Anastomotic complication [None]
  - Dysuria [None]
  - Pyrexia [None]
  - Gastroenteritis Escherichia coli [None]
  - Vomiting [None]

NARRATIVE: CASE EVENT DATE: 20250328
